FAERS Safety Report 12110514 (Version 2)
Quarter: 2016Q2

REPORT INFORMATION
  Report Type: Spontaneous
  Country: US (occurrence: US)
  Receive Date: 20160224
  Receipt Date: 20160407
  Transmission Date: 20160815
  Serious: Yes (Death)
  Sender: FDA-Public Use
  Company Number: US-PFIZER INC-2015353133

PATIENT
  Age: 63 Year
  Sex: Male

DRUGS (1)
  1. IBRANCE [Suspect]
     Active Substance: PALBOCICLIB
     Indication: NEUROENDOCRINE CARCINOMA OF THE SKIN
     Dosage: UNK UNK, 1X/DAY
     Route: 048
     Dates: start: 201510, end: 20151220

REACTIONS (5)
  - Disease progression [Fatal]
  - Neuroendocrine carcinoma of the skin [Fatal]
  - Product use issue [Unknown]
  - Dehydration [Unknown]
  - Diarrhoea [Unknown]

NARRATIVE: CASE EVENT DATE: 2015
